FAERS Safety Report 7501624-5 (Version None)
Quarter: 2011Q2

REPORT INFORMATION
  Report Type: 
  Country: None (occurrence: None)
  Receive Date: 20110524
  Receipt Date: 20110513
  Transmission Date: 20111010
  Serious: Yes (Hospitalization)
  Sender: FDA-Public Use
  Company Number: US-WATSON-2011-06634

PATIENT
  Age: 60 Year
  Sex: Male

DRUGS (11)
  1. DIAZEPAM [Suspect]
     Indication: PRODUCT USED FOR UNKNOWN INDICATION
     Dosage: UNK
     Route: 065
  2. ASPIRIN [Suspect]
     Indication: PROPHYLAXIS
  3. PREDNISONE [Suspect]
     Indication: ANTIINFLAMMATORY THERAPY
     Dosage: 1MG/KG BODY WEIGHT
     Route: 048
  4. AZITHROMYCIN [Suspect]
     Indication: UPPER RESPIRATORY TRACT INFECTION
     Dosage: UNK
     Route: 048
  5. ST. JOHN'S WORT [Suspect]
     Indication: PRODUCT USED FOR UNKNOWN INDICATION
     Dosage: UNK
     Route: 048
  6. VENLAFAXINE [Suspect]
     Indication: PRODUCT USED FOR UNKNOWN INDICATION
     Dosage: UNK
     Route: 048
  7. OMEPRAZOLE [Suspect]
     Indication: PRODUCT USED FOR UNKNOWN INDICATION
     Dosage: UNK
     Route: 048
  8. ATORVASTATIN [Suspect]
     Indication: PRODUCT USED FOR UNKNOWN INDICATION
     Dosage: UNK
     Route: 048
  9. METHYLPREDNISOLONE ACETATE [Suspect]
     Indication: ANTIINFLAMMATORY THERAPY
     Dosage: 1 G, DAILY X 3 DAYS
     Route: 042
  10. TESTOSTERONE [Suspect]
     Indication: PRIMARY HYPOGONADISM
     Dosage: UNK
     Route: 061
  11. BUDESONIDE [Suspect]
     Indication: PRODUCT USED FOR UNKNOWN INDICATION
     Dosage: UNK
     Route: 065

REACTIONS (3)
  - ORTHOSTATIC HYPOTENSION [None]
  - TUBULOINTERSTITIAL NEPHRITIS [None]
  - GASTROINTESTINAL ULCER HAEMORRHAGE [None]
